FAERS Safety Report 17598786 (Version 3)
Quarter: 2020Q2

REPORT INFORMATION
  Report Type: Report from Study
  Country: JP (occurrence: JP)
  Receive Date: 20200330
  Receipt Date: 20200420
  Transmission Date: 20200713
  Serious: Yes (Life-Threatening, Hospitalization)
  Sender: FDA-Public Use
  Company Number: JP-CELGENEUS-JPN-20200308261

PATIENT
  Age: 80 Year
  Sex: Male
  Weight: 58 kg

DRUGS (17)
  1. GILTERITINIB [Suspect]
     Active Substance: GILTERITINIB
     Dosage: 40 MILLIGRAM
     Route: 048
     Dates: start: 20200402
  2. RIVOTRIL [Concomitant]
     Active Substance: CLONAZEPAM
     Indication: PRODUCT USED FOR UNKNOWN INDICATION
     Dosage: .5 MILLIGRAM
     Route: 065
  3. MAGNESIUM OXIDE. [Concomitant]
     Active Substance: MAGNESIUM OXIDE
     Indication: PRODUCT USED FOR UNKNOWN INDICATION
     Dosage: 500 MILLIGRAM
     Route: 065
     Dates: start: 20191011
  4. VIDAZA [Suspect]
     Active Substance: AZACITIDINE
     Dosage: 60 MILLIGRAM
     Route: 048
     Dates: start: 20200212
  5. GILTERITINIB [Suspect]
     Active Substance: GILTERITINIB
     Indication: ACUTE MYELOID LEUKAEMIA
     Dosage: 120 MILLIGRAM
     Route: 048
     Dates: start: 20191016, end: 20191210
  6. GILTERITINIB [Suspect]
     Active Substance: GILTERITINIB
     Dosage: 80 MILLIGRAM
     Route: 048
     Dates: start: 20191211, end: 20200322
  7. PREDNISOLONE. [Concomitant]
     Active Substance: PREDNISOLONE
     Indication: PRODUCT USED FOR UNKNOWN INDICATION
     Dosage: 5 MILLIGRAM
     Route: 065
     Dates: start: 20191010
  8. BIOFERMIN R [Concomitant]
     Active Substance: DIETARY SUPPLEMENT\PROBIOTICS
     Indication: PRODUCT USED FOR UNKNOWN INDICATION
     Route: 065
     Dates: start: 20191115
  9. VIDAZA [Suspect]
     Active Substance: AZACITIDINE
     Dosage: 120 MILLIGRAM
     Route: 048
     Dates: start: 20191218, end: 20191221
  10. VIDAZA [Suspect]
     Active Substance: AZACITIDINE
     Dosage: 60 MILLIGRAM
     Route: 048
     Dates: start: 20200311, end: 20200316
  11. NEXIUM [Concomitant]
     Active Substance: ESOMEPRAZOLE MAGNESIUM
     Indication: PRODUCT USED FOR UNKNOWN INDICATION
     Dosage: 20 MILLIGRAM
     Route: 065
  12. VIDAZA [Suspect]
     Active Substance: AZACITIDINE
     Indication: ACUTE MYELOID LEUKAEMIA
     Dosage: 120 MILLIGRAM
     Route: 048
     Dates: start: 20191016, end: 20191022
  13. VIDAZA [Suspect]
     Active Substance: AZACITIDINE
     Dosage: 120 MILLIGRAM
     Route: 048
     Dates: start: 20191118, end: 20191126
  14. VIDAZA [Suspect]
     Active Substance: AZACITIDINE
     Dosage: 120 MILLIGRAM
     Route: 048
     Dates: start: 20200115, end: 20200118
  15. OXYCODONE [Concomitant]
     Active Substance: OXYCODONE
     Indication: PRODUCT USED FOR UNKNOWN INDICATION
     Dosage: 5 MILLIGRAM
     Route: 065
     Dates: start: 20191102
  16. ALFACALCIDOL [Concomitant]
     Active Substance: ALFACALCIDOL
     Indication: PRODUCT USED FOR UNKNOWN INDICATION
     Dosage: .5 GRAM
     Route: 065
  17. AMITIZA [Concomitant]
     Active Substance: LUBIPROSTONE
     Indication: PRODUCT USED FOR UNKNOWN INDICATION
     Dosage: 24 GRAM
     Route: 065

REACTIONS (2)
  - Lower gastrointestinal haemorrhage [Recovering/Resolving]
  - Pyrexia [Recovering/Resolving]

NARRATIVE: CASE EVENT DATE: 20200316
